FAERS Safety Report 11711347 (Version 1)
Quarter: 2015Q4

REPORT INFORMATION
  Report Type: Spontaneous
  Country: US (occurrence: US)
  Receive Date: 20151104
  Receipt Date: 20151104
  Transmission Date: 20160304
  Serious: No
  Sender: FDA-Public Use
  Company Number: US-ELI_LILLY_AND_COMPANY-US201104004643

PATIENT
  Age: 66 Year
  Sex: Female

DRUGS (4)
  1. FORTEO [Suspect]
     Active Substance: TERIPARATIDE
     Dosage: 20 UG, QD
  2. CALCIUM [Concomitant]
     Active Substance: CALCIUM
     Dosage: 600 MG, DAILY (1/D)
  3. FORTEO [Suspect]
     Active Substance: TERIPARATIDE
     Indication: OSTEOPOROSIS
     Dosage: 20 UG, QD
     Dates: start: 20110202, end: 201103
  4. CALCIUM [Concomitant]
     Active Substance: CALCIUM
     Dosage: 300 MG, DAILY (1/D)

REACTIONS (16)
  - Chest discomfort [Unknown]
  - Constipation [Unknown]
  - Muscle twitching [Unknown]
  - Pain in extremity [Unknown]
  - Intentional product misuse [Unknown]
  - Insomnia [Recovered/Resolved]
  - Blood calcium increased [Unknown]
  - Musculoskeletal chest pain [Unknown]
  - Skin discolouration [Unknown]
  - Ear pain [Unknown]
  - Arthralgia [Unknown]
  - Headache [Unknown]
  - Chest pain [Unknown]
  - Feeling abnormal [Unknown]
  - Neck pain [Unknown]
  - Nausea [Unknown]

NARRATIVE: CASE EVENT DATE: 201103
